FAERS Safety Report 19777300 (Version 1)
Quarter: 2021Q3

REPORT INFORMATION
  Report Type: Report from Study
  Country: PS (occurrence: PS)
  Receive Date: 20210902
  Receipt Date: 20210902
  Transmission Date: 20211014
  Serious: Yes (Other)
  Sender: FDA-Public Use
  Company Number: PS-EMD SERONO-9260482

PATIENT
  Age: 42 Year
  Sex: Female

DRUGS (1)
  1. REBIF [Suspect]
     Active Substance: INTERFERON BETA-1A
     Indication: MULTIPLE SCLEROSIS
     Dosage: PREFILLED SYRINGE
     Dates: start: 20210809

REACTIONS (3)
  - Suicide attempt [Recovered/Resolved]
  - Arterial injury [Recovered/Resolved]
  - Depression [Unknown]

NARRATIVE: CASE EVENT DATE: 202108
